FAERS Safety Report 5757742-5 (Version None)
Quarter: 2008Q2

REPORT INFORMATION
  Report Type: 
  Country: None (occurrence: None)
  Receive Date: 20080529
  Receipt Date: 20080523
  Transmission Date: 20081010
  Serious: Yes (Life-Threatening, Hospitalization, Other)
  Sender: FDA-Public Use
  Company Number: 2008SP009582

PATIENT
  Sex: Female
  Weight: 65 kg

DRUGS (5)
  1. TEMODAL [Suspect]
     Indication: GLIOBLASTOMA MULTIFORME
     Dosage: 75 MCG/M2; QD; PO
     Route: 048
     Dates: start: 20080303, end: 20080415
  2. OMEPRAZOLE [Concomitant]
  3. FLUOXETINE [Concomitant]
  4. VALPROAT-ACID [Concomitant]
  5. LEVETIRACETAM [Concomitant]

REACTIONS (6)
  - ALVEOLITIS [None]
  - APPARENT LIFE THREATENING EVENT [None]
  - OEDEMA MUCOSAL [None]
  - PNEUMOCYSTIS JIROVECI INFECTION [None]
  - PNEUMONITIS [None]
  - RESPIRATORY FAILURE [None]
